FAERS Safety Report 16018611 (Version 1)
Quarter: 2019Q1

REPORT INFORMATION
  Report Type: Spontaneous
  Country: US (occurrence: US)
  Receive Date: 20190228
  Receipt Date: 20190228
  Transmission Date: 20190418
  Serious: No
  Sender: FDA-Public Use
  Company Number: US-TEVA-2019-US-1008947

PATIENT
  Sex: Male

DRUGS (2)
  1. SILDENAFIL TEVA 100MG [Suspect]
     Active Substance: SILDENAFIL
     Route: 065
  2. SILDENAFIL 100MG AVKARE [Suspect]
     Active Substance: SILDENAFIL
     Route: 065

REACTIONS (4)
  - Headache [Unknown]
  - Nausea [Unknown]
  - Drug ineffective [Unknown]
  - Vomiting [Unknown]
